FAERS Safety Report 23192524 (Version 1)
Quarter: 2023Q4

REPORT INFORMATION
  Report Type: Report from Study
  Country: US (occurrence: US)
  Receive Date: 20231116
  Receipt Date: 20231116
  Transmission Date: 20240110
  Serious: No
  Sender: FDA-Public Use
  Company Number: US-AstraZeneca-CH-00503513A

PATIENT
  Sex: Female

DRUGS (1)
  1. ULTOMIRIS [Suspect]
     Active Substance: RAVULIZUMAB-CWVZ
     Indication: Product used for unknown indication
     Dosage: UNK, EVERY 8 WEEKS
     Route: 065

REACTIONS (5)
  - Blood pressure increased [Unknown]
  - Migraine [Unknown]
  - Headache [Unknown]
  - Asthenia [Unknown]
  - Dizziness [Unknown]
